FAERS Safety Report 9423408 (Version 2)
Quarter: 2013Q4

REPORT INFORMATION
  Report Type: Spontaneous
  Country: US (occurrence: US)
  Receive Date: 20130726
  Receipt Date: 20131017
  Transmission Date: 20140711
  Serious: No
  Sender: FDA-Public Use
  Company Number: US-009507513-1307USA013668

PATIENT
  Age: 76 Year
  Sex: Male
  Weight: 73.7 kg

DRUGS (8)
  1. MIRALAX [Suspect]
     Indication: CONSTIPATION
     Dosage: UNK
     Route: 048
     Dates: start: 201005, end: 201307
  2. LIPITOR [Concomitant]
     Indication: CORONARY ARTERY DISEASE
     Dosage: UNK, UNKNOWN
  3. PLAVIX [Concomitant]
     Indication: CORONARY ARTERY DISEASE
     Dosage: UNK, UNKNOWN
  4. COREG [Concomitant]
     Indication: CORONARY ARTERY DISEASE
     Dosage: UNK, UNKNOWN
  5. LEVOTHYROXINE SODIUM [Concomitant]
     Indication: THYROID DISORDER
     Dosage: UNK, UNKNOWN
  6. ASPIRIN [Concomitant]
     Indication: PRODUCT USED FOR UNKNOWN INDICATION
  7. CHOLECALCIFEROL [Concomitant]
     Indication: PRODUCT USED FOR UNKNOWN INDICATION
     Dosage: UNK, UNKNOWN
  8. PSYLLIUM HUSK [Concomitant]
     Indication: CONSTIPATION
     Dosage: UNK, UNKNOWN

REACTIONS (2)
  - Weight decreased [Not Recovered/Not Resolved]
  - Incorrect drug administration duration [Unknown]
